FAERS Safety Report 10355378 (Version 1)
Quarter: 2014Q3

REPORT INFORMATION
  Report Type: Spontaneous
  Country: US (occurrence: US)
  Receive Date: 20140731
  Receipt Date: 20140731
  Transmission Date: 20150326
  Serious: No
  Sender: FDA-Public Use
  Company Number: US-FRI-1000069293

PATIENT
  Age: 28 Year
  Sex: Male

DRUGS (9)
  1. SAPHRIS [Suspect]
     Active Substance: ASENAPINE MALEATE
     Dosage: 20 MG
     Route: 060
     Dates: start: 2014, end: 20140721
  2. SAPHRIS [Suspect]
     Active Substance: ASENAPINE MALEATE
     Indication: SCHIZOPHRENIA
     Dosage: 10 MG TID
     Route: 060
     Dates: start: 201405, end: 201405
  3. SAPHRIS [Suspect]
     Active Substance: ASENAPINE MALEATE
     Dosage: 5 MG TID
     Route: 060
     Dates: start: 2014, end: 2014
  4. SAPHRIS [Suspect]
     Active Substance: ASENAPINE MALEATE
     Indication: SCHIZOPHRENIA
     Dosage: 5 MG
     Route: 060
     Dates: start: 2014, end: 2014
  5. SAPHRIS [Suspect]
     Active Substance: ASENAPINE MALEATE
     Dosage: 10 MG AM, 20 MG QHS
     Route: 060
     Dates: start: 2014, end: 2014
  6. SAPHRIS [Suspect]
     Active Substance: ASENAPINE MALEATE
     Dosage: 10 MG BID
     Route: 060
     Dates: start: 2014, end: 201405
  7. SAPHRIS [Suspect]
     Active Substance: ASENAPINE MALEATE
     Indication: SCHIZOPHRENIA
     Dosage: 5 MG AM, 20 MG QHS
     Route: 060
     Dates: start: 20140722
  8. SAPHRIS [Suspect]
     Active Substance: ASENAPINE MALEATE
     Dosage: 30 MG QHS
     Route: 060
     Dates: start: 2014, end: 2014
  9. SAPHRIS [Suspect]
     Active Substance: ASENAPINE MALEATE
     Dosage: 5 MG BID
     Route: 060
     Dates: start: 2014, end: 2014

REACTIONS (5)
  - Intentional product misuse [Not Recovered/Not Resolved]
  - Psychotic behaviour [Recovered/Resolved]
  - Dyspnoea [Not Recovered/Not Resolved]
  - Abdominal pain upper [Unknown]
  - Prescribed overdose [Recovered/Resolved]

NARRATIVE: CASE EVENT DATE: 2014
